FAERS Safety Report 10085562 (Version 2)
Quarter: 2014Q2

REPORT INFORMATION
  Report Type: Spontaneous
  Country: US (occurrence: US)
  Receive Date: 20140418
  Receipt Date: 20140425
  Transmission Date: 20141212
  Serious: Yes (Death)
  Sender: FDA-Public Use
  Company Number: US-009507513-1404USA009060

PATIENT
  Age: 72 Year
  Sex: Male

DRUGS (1)
  1. TEMODAR [Suspect]
     Dosage: 100 MG, ^THREE TABLETS DAILY^
     Route: 048
     Dates: start: 20140225

REACTIONS (1)
  - Death [Fatal]
